FAERS Safety Report 17336630 (Version 3)
Quarter: 2020Q3

REPORT INFORMATION
  Report Type: Spontaneous
  Country: US (occurrence: US)
  Receive Date: 20200129
  Receipt Date: 20200923
  Transmission Date: 20201102
  Serious: Yes (Hospitalization, Other)
  Sender: FDA-Public Use
  Company Number: US-AMGEN-USASP2020012931

PATIENT
  Age: 48 Year
  Sex: Male
  Weight: 98.41 kg

DRUGS (16)
  1. NPLATE [Suspect]
     Active Substance: ROMIPLOSTIM
     Dosage: 750 MICROGRAM, QWK
     Route: 065
     Dates: start: 20200102
  2. DAPSONE. [Concomitant]
     Active Substance: DAPSONE
     Dosage: 200 MILLIGRAM, QD
     Dates: start: 20191203
  3. NPLATE [Suspect]
     Active Substance: ROMIPLOSTIM
     Dosage: 950 MICROGRAM, QWK
     Route: 065
     Dates: start: 20200116
  4. NPLATE [Suspect]
     Active Substance: ROMIPLOSTIM
     Dosage: 986 MICROGRAM, QWK
     Route: 065
     Dates: start: 20200123
  5. VITAMIN D [COLECALCIFEROL] [Concomitant]
     Active Substance: CHOLECALCIFEROL
     Dosage: UNK
  6. PREDNISONE. [Concomitant]
     Active Substance: PREDNISONE
     Dosage: 40 MILLIGRAM
     Dates: start: 20200123
  7. NPLATE [Suspect]
     Active Substance: ROMIPLOSTIM
     Dosage: 202.5 MICROGRAM, QWK
     Route: 065
     Dates: start: 20191118
  8. NPLATE [Suspect]
     Active Substance: ROMIPLOSTIM
     Indication: IMMUNE THROMBOCYTOPENIA
     Dosage: 102 MICROGRAM, QWK
     Route: 065
     Dates: start: 20191111
  9. PREVACID [Concomitant]
     Active Substance: LANSOPRAZOLE
     Dosage: UNK
  10. CLARITIN [CLARITHROMYCIN] [Concomitant]
     Active Substance: CLARITHROMYCIN
     Dosage: UNK
  11. POTASSIUM [Concomitant]
     Active Substance: POTASSIUM
     Dosage: 10 MILLIEQUIVALENT
  12. RITUXAN [Concomitant]
     Active Substance: RITUXIMAB
     Dosage: UNK
     Dates: start: 20191111, end: 20191220
  13. NPLATE [Suspect]
     Active Substance: ROMIPLOSTIM
     Dosage: 500 MICROGRAM, FOR FOUR WEEKS
     Route: 065
     Dates: start: 20191202
  14. NPLATE [Suspect]
     Active Substance: ROMIPLOSTIM
     Dosage: 305.5 MICROGRAM, QWK
     Route: 065
     Dates: start: 20191125
  15. NPLATE [Suspect]
     Active Substance: ROMIPLOSTIM
     Dosage: 850 MICROGRAM, QWK
     Route: 065
     Dates: start: 20200109
  16. PREDNISONE. [Concomitant]
     Active Substance: PREDNISONE
     Dosage: 60 MILLIGRAM
     Dates: start: 20191202

REACTIONS (3)
  - Contusion [Unknown]
  - Drug ineffective [Unknown]
  - Fall [Unknown]

NARRATIVE: CASE EVENT DATE: 2019
